FAERS Safety Report 9387702 (Version 1)
Quarter: 2013Q3

REPORT INFORMATION
  Report Type: Spontaneous
  Country: US (occurrence: US)
  Receive Date: 20130708
  Receipt Date: 20130708
  Transmission Date: 20140515
  Serious: Yes (Other)
  Sender: FDA-Public Use
  Company Number: US-PFIZER INC-2013199936

PATIENT
  Age: 47 Year
  Sex: Male
  Weight: 110 kg

DRUGS (3)
  1. NEURONTIN [Suspect]
     Indication: CONVULSION
     Dosage: 800 MG, 4X/DAY
     Route: 048
     Dates: start: 2005
  2. VISTARIL [Concomitant]
     Indication: ANXIETY
     Dosage: 50 MG, 2X/DAY
  3. ZOLOFT [Concomitant]
     Indication: DEPRESSION
     Dosage: UNK

REACTIONS (2)
  - Cerebrovascular accident [Unknown]
  - Dizziness [Unknown]
